APPROVED DRUG PRODUCT: POLYMYXIN B SULFATE
Active Ingredient: POLYMYXIN B SULFATE
Strength: EQ 500,000 UNITS BASE/VIAL
Dosage Form/Route: INJECTABLE;INJECTION
Application: A063000 | Product #001
Applicant: PHARMOBEDIENT CONSULTING LLC
Approved: Sep 30, 1994 | RLD: No | RS: No | Type: DISCN